FAERS Safety Report 13129593 (Version 2)
Quarter: 2017Q1

REPORT INFORMATION
  Report Type: Spontaneous
  Country: FR (occurrence: FR)
  Receive Date: 20170119
  Receipt Date: 20170202
  Transmission Date: 20170428
  Serious: Yes (Death, Other)
  Sender: FDA-Public Use
  Company Number: FR-BRISTOL-MYERS SQUIBB COMPANY-BMS-2017-002123

PATIENT
  Age: 70 Year
  Sex: Female

DRUGS (5)
  1. INNOHEP [Suspect]
     Active Substance: TINZAPARIN SODIUM
     Indication: THROMBOSIS
     Dosage: UNK MG/KG, UNK
     Route: 065
     Dates: start: 201410
  2. CARDENSIEL [Concomitant]
     Active Substance: BISOPROLOL FUMARATE
     Indication: PRODUCT USED FOR UNKNOWN INDICATION
     Dosage: 1.25 MG, BID
     Route: 065
     Dates: start: 20141120
  3. INNOHEP [Suspect]
     Active Substance: TINZAPARIN SODIUM
     Indication: PRODUCT USED FOR UNKNOWN INDICATION
     Dosage: UNK
     Route: 065
  4. CARDENSIEL [Concomitant]
     Active Substance: BISOPROLOL FUMARATE
     Indication: TACHYCARDIA
     Dosage: 1.25 MG, QD
     Route: 065
     Dates: start: 201302
  5. OPDIVO [Suspect]
     Active Substance: NIVOLUMAB
     Indication: LUNG NEOPLASM MALIGNANT
     Dosage: 165 MG, UNK
     Route: 042
     Dates: start: 20150422

REACTIONS (11)
  - Abdominal pain [Fatal]
  - Chest pain [Fatal]
  - Hyponatraemia [Fatal]
  - Constipation [Fatal]
  - Nervous system disorder [Fatal]
  - Nausea [Fatal]
  - Thrombocytopenia [Fatal]
  - Sinusitis [Fatal]
  - Anuria [Fatal]
  - Subdural haematoma [Fatal]
  - Headache [Fatal]

NARRATIVE: CASE EVENT DATE: 20150503
